FAERS Safety Report 8787498 (Version 1)
Quarter: 2012Q4

REPORT INFORMATION
  Report Type: 
  Country: NL (occurrence: NL)
  Receive Date: 20120914
  Receipt Date: 20120914
  Transmission Date: 20130627
  Serious: Yes (Hospitalization)
  Sender: FDA-Public Use
  Company Number: PHHY2012NL076874

PATIENT
  Age: 24 Year
  Sex: Male

DRUGS (1)
  1. PARACETAMOL [Suspect]
     Dosage: 40 DF, UNK

REACTIONS (8)
  - Liver injury [Recovered/Resolved]
  - Vomiting [Recovered/Resolved]
  - Nausea [Recovered/Resolved]
  - Jaundice [Recovered/Resolved]
  - Feeling abnormal [Recovered/Resolved]
  - Hepatic enzyme increased [Recovered/Resolved]
  - Drug level increased [Recovered/Resolved]
  - Intentional overdose [Unknown]
